FAERS Safety Report 9222196 (Version 1)
Quarter: 2013Q1

REPORT INFORMATION
  Report Type: Spontaneous
  Country: US (occurrence: None)
  Receive Date: 20120914
  Receipt Date: 20120914
  Transmission Date: 20140127
  Serious: Yes (Other)
  Sender: FDA-Public Use
  Company Number: JPI-P-020357

PATIENT
  Age: 57 Year
  Sex: Female
  Weight: 83.92 kg

DRUGS (8)
  1. XYREM (500 MILLIGRAM/MILLILITERS, SOLUTION) (SODIUM OXYBATE) [Suspect]
     Indication: SOMNOLENCE
     Route: 048
     Dates: start: 20120307, end: 201203
  2. XYREM (500 MILLIGRAM/MILLILITERS, SOLUTION) (SODIUM OXYBATE) [Suspect]
     Indication: SLEEP DISORDER
     Route: 048
     Dates: start: 20120307, end: 201203
  3. HYDROCORTISONE [Concomitant]
  4. VERAPAMIL HYDROCHLORIDE [Concomitant]
  5. VALSARTAN [Concomitant]
  6. ARMOUR THYROID [Concomitant]
  7. TRIAMETRENE/HCTZ [Concomitant]
  8. FISH OIL [Concomitant]

REACTIONS (12)
  - Blood pressure increased [None]
  - Procedural complication [None]
  - Dysuria [None]
  - Ocular hyperaemia [None]
  - Eye infection [None]
  - Fatigue [None]
  - Dizziness [None]
  - Arthralgia [None]
  - Feeling jittery [None]
  - Cold sweat [None]
  - Vomiting [None]
  - Hypopnoea [None]
